FAERS Safety Report 25644038 (Version 1)
Quarter: 2025Q3

REPORT INFORMATION
  Report Type: Spontaneous
  Country: US (occurrence: US)
  Receive Date: 20250805
  Receipt Date: 20250805
  Transmission Date: 20251020
  Serious: Yes (Hospitalization)
  Sender: AMGEN
  Company Number: US-AMGEN-USASP2025151130

PATIENT
  Age: 77 Year
  Sex: Female

DRUGS (6)
  1. REPATHA [Suspect]
     Active Substance: EVOLOCUMAB
     Indication: Product used for unknown indication
     Route: 058
  2. REPATHA [Suspect]
     Active Substance: EVOLOCUMAB
     Dosage: 140 MILLIGRAM, Q2WK
     Route: 058
     Dates: start: 20250707
  3. REPATHA [Suspect]
     Active Substance: EVOLOCUMAB
     Route: 058
  4. ASPIRIN [Concomitant]
     Active Substance: ASPIRIN
     Indication: Aortic stenosis
     Route: 058
  5. ASPIRIN [Concomitant]
     Active Substance: ASPIRIN
     Route: 058
  6. INSULIN NOS [Concomitant]
     Active Substance: INSULIN NOS

REACTIONS (5)
  - Transient ischaemic attack [Recovered/Resolved]
  - Cerebral artery stenosis [Recovered/Resolved]
  - Device difficult to use [Unknown]
  - Injection site pain [Recovered/Resolved]
  - Fear of injection [Recovered/Resolved]

NARRATIVE: CASE EVENT DATE: 20241101
